FAERS Safety Report 9524971 (Version 3)
Quarter: 2015Q2

REPORT INFORMATION
  Report Type: Spontaneous
  Country: US (occurrence: US)
  Receive Date: 20130916
  Receipt Date: 20150519
  Transmission Date: 20150821
  Serious: Yes (Hospitalization, Other)
  Sender: FDA-Public Use
  Company Number: US-BAYER-2013-111242

PATIENT
  Age: 25 Year
  Sex: Female
  Weight: 56.69 kg

DRUGS (3)
  1. NUVARING [Concomitant]
     Active Substance: ETHINYL ESTRADIOL\ETONOGESTREL
     Indication: CONTRACEPTION
  2. FLAGYL [Concomitant]
     Active Substance: METRONIDAZOLE\METRONIDAZOLE HYDROCHLORIDE
  3. MIRENA [Suspect]
     Active Substance: LEVONORGESTREL
     Indication: CONTRACEPTION
     Dosage: 20 MCG/24HR, CONT
     Route: 015
     Dates: start: 20061211, end: 20111019

REACTIONS (11)
  - Pelvic inflammatory disease [None]
  - Emotional distress [None]
  - Depression [None]
  - Anxiety [None]
  - Medical device discomfort [None]
  - Procedural pain [None]
  - Injury [None]
  - Scar [None]
  - Pain [None]
  - Embedded device [None]
  - Device failure [None]

NARRATIVE: CASE EVENT DATE: 2009
